FAERS Safety Report 4312377-6 (Version None)
Quarter: 2004Q1

REPORT INFORMATION
  Report Type: 
  Country: None (occurrence: None)
  Receive Date: 20040303
  Receipt Date: 20040217
  Transmission Date: 20041129
  Serious: Yes (Other)
  Sender: FDA-Public Use
  Company Number: 2004011442

PATIENT
  Age: 41 Year
  Sex: Female

DRUGS (1)
  1. CYCLOKAPRON (TRANEXAMIC ACID) [Suspect]
     Indication: MENORRHAGIA
     Dosage: 500 MG BID ORAL
     Route: 048
     Dates: start: 20030801, end: 20031001

REACTIONS (1)
  - URTICARIA [None]
